FAERS Safety Report 12287620 (Version 1)
Quarter: 2016Q2

REPORT INFORMATION
  Report Type: Spontaneous
  Country: GB (occurrence: GB)
  Receive Date: 20160420
  Receipt Date: 20160420
  Transmission Date: 20160815
  Serious: Yes (Hospitalization)
  Sender: FDA-Public Use
  Company Number: GB-JNJFOC-20160313559

PATIENT
  Age: 73 Year
  Sex: Female

DRUGS (1)
  1. SIMPONI [Suspect]
     Active Substance: GOLIMUMAB
     Indication: PRODUCT USED FOR UNKNOWN INDICATION
     Route: 058

REACTIONS (12)
  - Skin discolouration [Not Recovered/Not Resolved]
  - Oedema peripheral [Not Recovered/Not Resolved]
  - Hot flush [Not Recovered/Not Resolved]
  - Sensory disturbance [Unknown]
  - Joint effusion [Unknown]
  - Hypoaesthesia [Unknown]
  - Musculoskeletal pain [Unknown]
  - Urinary tract infection [Recovering/Resolving]
  - Peripheral coldness [Unknown]
  - Joint effusion [Unknown]
  - Sensory loss [Unknown]
  - Fall [Unknown]

NARRATIVE: CASE EVENT DATE: 201604
